FAERS Safety Report 9877183 (Version 2)
Quarter: 2014Q1

REPORT INFORMATION
  Report Type: Report from Study
  Country: ES (occurrence: ES)
  Receive Date: 20140206
  Receipt Date: 20140206
  Transmission Date: 20141002
  Serious: Yes (Other)
  Sender: FDA-Public Use
  Company Number: ES-VERTEX PHARMACEUTICALS INC-2013-009439

PATIENT
  Age: 54 Year
  Sex: Male

DRUGS (5)
  1. TELAPREVIR [Suspect]
     Indication: HEPATITIS C
  2. RIBAVIRIN [Suspect]
     Indication: HEPATITIS C
     Dosage: DOSAGE FORM: UNSPECIFIED
     Route: 065
  3. RIBAVIRIN [Suspect]
     Indication: CHRONIC HEPATITIS C
     Dosage: DOSAGE FORM: UNSPECIFIED
     Route: 065
  4. PEG-INTERFERON [Suspect]
     Indication: HEPATITIS C
     Dosage: DOSAGE FORM: UNSPECIFIED
     Route: 065
  5. PEG-INTERFERON [Suspect]
     Indication: CHRONIC HEPATITIS C

REACTIONS (4)
  - Renal failure [Unknown]
  - Neutropenia [Unknown]
  - Hyperuricaemia [Unknown]
  - Anaemia [Unknown]
